FAERS Safety Report 16145549 (Version 1)
Quarter: 2019Q2

REPORT INFORMATION
  Report Type: Spontaneous
  Country: US (occurrence: US)
  Receive Date: 20190401
  Receipt Date: 20190401
  Transmission Date: 20190711
  Serious: No
  Sender: FDA-Public Use
  Company Number: None

PATIENT
  Age: 38 Year
  Sex: Male
  Weight: 148.05 kg

DRUGS (5)
  1. PHENTERMINE. [Concomitant]
     Active Substance: PHENTERMINE
  2. ALPRAZOLAM. [Suspect]
     Active Substance: ALPRAZOLAM
     Indication: POST-TRAUMATIC STRESS DISORDER
     Dosage: ?          QUANTITY:60 TABLET(S);?
     Route: 048
     Dates: start: 20190331, end: 20190401
  3. XANAX XR [Concomitant]
     Active Substance: ALPRAZOLAM
  4. CLA [Concomitant]
  5. ALPRAZOLAM. [Suspect]
     Active Substance: ALPRAZOLAM
     Indication: GENERALISED ANXIETY DISORDER
     Dosage: ?          QUANTITY:60 TABLET(S);?
     Route: 048
     Dates: start: 20190331, end: 20190401

REACTIONS (7)
  - Product formulation issue [None]
  - Nervousness [None]
  - Product complaint [None]
  - Drug ineffective [None]
  - Anxiety [None]
  - Agitation [None]
  - Product substitution issue [None]

NARRATIVE: CASE EVENT DATE: 20190331
